FAERS Safety Report 24968293 (Version 2)
Quarter: 2025Q1

REPORT INFORMATION
  Report Type: Spontaneous
  Country: IT (occurrence: IT)
  Receive Date: 20250214
  Receipt Date: 20250220
  Transmission Date: 20250408
  Serious: Yes (Life-Threatening, Hospitalization, Other)
  Sender: GLAXOSMITHKLINE
  Company Number: None

PATIENT

DRUGS (8)
  1. LAMICTAL [Suspect]
     Active Substance: LAMOTRIGINE
     Indication: Product used for unknown indication
     Dosage: 200 MG, QD (LAMIKTAL 50 MG 4 TABLETS)
     Route: 048
     Dates: start: 20240812, end: 20240812
  2. RIVOTRIL [Suspect]
     Active Substance: CLONAZEPAM
     Indication: Product used for unknown indication
     Route: 048
     Dates: start: 20240812, end: 20240812
  3. VALPROATE SODIUM [Suspect]
     Active Substance: VALPROATE SODIUM
     Indication: Product used for unknown indication
     Dosage: 1500 MG, QD (DEPAKIN 500MG 3 TABLETS)
     Route: 048
     Dates: start: 20240812, end: 20240812
  4. QUETIAPINE [Suspect]
     Active Substance: QUETIAPINE
     Indication: Product used for unknown indication
     Route: 048
     Dates: start: 20240812, end: 20240812
  5. ABILIFY [Suspect]
     Active Substance: ARIPIPRAZOLE
     Indication: Product used for unknown indication
     Dosage: 40 MG, QD (ABILIFY 10 MG 4 TABLETS)
     Route: 048
     Dates: start: 20240812, end: 20240812
  6. VENLAFAXINE HYDROCHLORIDE [Suspect]
     Active Substance: VENLAFAXINE HYDROCHLORIDE
     Indication: Product used for unknown indication
     Dosage: 300 MG, QD (ZARILIS 75MG 4 TABLETS)
     Route: 048
     Dates: start: 20240812, end: 20240812
  7. PERINDOPRIL [Suspect]
     Active Substance: PERINDOPRIL
     Indication: Product used for unknown indication
     Dosage: 16 MG, QD (PERINDOPRIL 4MG 4 TABLETS)
     Route: 048
     Dates: start: 20240812, end: 20240812
  8. LASIX [Suspect]
     Active Substance: FUROSEMIDE
     Indication: Product used for unknown indication
     Dosage: 100 MG, QD (LASIX 25MG 4 TABLETS)
     Route: 048
     Dates: start: 20240812, end: 20240812

REACTIONS (3)
  - Intentional self-injury [Recovered/Resolved]
  - Drug abuse [Unknown]
  - Sopor [Recovered/Resolved]

NARRATIVE: CASE EVENT DATE: 20240812
